FAERS Safety Report 16385457 (Version 1)
Quarter: 2019Q2

REPORT INFORMATION
  Report Type: Spontaneous
  Country: US (occurrence: US)
  Receive Date: 20190603
  Receipt Date: 20190603
  Transmission Date: 20190711
  Serious: No
  Sender: FDA-Public Use
  Company Number: US-BAUSCH-BL-2019-015113

PATIENT
  Sex: Female
  Weight: 58.11 kg

DRUGS (1)
  1. RENOVA [Suspect]
     Active Substance: TRETINOIN
     Indication: SKIN HYPERPIGMENTATION
     Dosage: AT BEDTIME
     Route: 061
     Dates: start: 201904

REACTIONS (3)
  - Dry skin [Unknown]
  - Erythema [Unknown]
  - Skin exfoliation [Unknown]

NARRATIVE: CASE EVENT DATE: 2019
